FAERS Safety Report 16808422 (Version 1)
Quarter: 2019Q3

REPORT INFORMATION
  Report Type: Spontaneous
  Country: US (occurrence: US)
  Receive Date: 20190724
  Receipt Date: 20190724
  Transmission Date: 20191005
  Serious: Yes (Life-Threatening, Hospitalization, Disabling, Other)
  Sender: FDA-Public Use
  Company Number: None

PATIENT
  Sex: Female
  Weight: 39.01 kg

DRUGS (2)
  1. ^WARFARIN SODIUM-GENERIC FOR JANTOVEN^ [Suspect]
     Active Substance: WARFARIN SODIUM
     Indication: THROMBOSIS
     Dosage: ?          QUANTITY:2 PILLS;OTHER FREQUENCY:PM;?
     Route: 048
     Dates: start: 20181227
  2. WALKER [DEVICE] [Concomitant]
     Active Substance: DEVICE

REACTIONS (2)
  - Internal haemorrhage [None]
  - Muscular weakness [None]
